FAERS Safety Report 6375392-7 (Version None)
Quarter: 2009Q3

REPORT INFORMATION
  Report Type: 
  Country: None (occurrence: None)
  Receive Date: 20090924
  Receipt Date: 20090917
  Transmission Date: 20100115
  Serious: Yes (Other)
  Sender: FDA-Public Use
  Company Number: US-GENENTECH-290640

PATIENT
  Sex: Male
  Weight: 33.9 kg

DRUGS (2)
  1. NUTROPIN AQ [Suspect]
     Indication: GROWTH HORMONE DEFICIENCY
     Dosage: 4.2 MG, QD
     Route: 058
     Dates: start: 19980507, end: 20040611
  2. NUTROPIN AQ [Suspect]
     Indication: BODY HEIGHT BELOW NORMAL

REACTIONS (1)
  - ACUTE LYMPHOCYTIC LEUKAEMIA [None]
